FAERS Safety Report 5055264-0 (Version None)
Quarter: 2006Q3

REPORT INFORMATION
  Report Type: 
  Country: None (occurrence: None)
  Receive Date: 20060714
  Receipt Date: 20060703
  Transmission Date: 20061208
  Serious: Yes (Death)
  Sender: FDA-Public Use
  Company Number: 2006063318

PATIENT
  Age: 73 Year
  Sex: Male

DRUGS (7)
  1. SU-011,248 (SUNITINIB MALATE) [Suspect]
     Indication: RENAL CELL CARCINOMA STAGE UNSPECIFIED
     Dosage: 50 MG (50 MG, 1 IN 1 D), ORAL
     Route: 048
     Dates: start: 20060427, end: 20060508
  2. ALLOPURINOL [Concomitant]
  3. VERAPAMIL [Concomitant]
  4. PERINDOPRIL ERBUMINE [Concomitant]
  5. PRAZOSIN GITS [Concomitant]
  6. COD-LIVER OIL (COD-LIVER OIL) [Concomitant]
  7. CELERY SEED OIL (CELERY SEED OIL) [Concomitant]

REACTIONS (1)
  - CARDIAC ARREST [None]
